FAERS Safety Report 9383494 (Version 1)
Quarter: 2013Q3

REPORT INFORMATION
  Report Type: Spontaneous
  Country: US (occurrence: US)
  Receive Date: 20130704
  Receipt Date: 20130704
  Transmission Date: 20140515
  Serious: Yes (Hospitalization, Other)
  Sender: FDA-Public Use
  Company Number: US-AMGEN-USASP2013045458

PATIENT
  Age: 78 Year
  Sex: Male

DRUGS (16)
  1. NEULASTA [Suspect]
     Indication: LUNG NEOPLASM MALIGNANT
     Dosage: UNK UNK, AFTER CHEMO
     Route: 065
     Dates: start: 20130401
  2. ALBUTEROL SULFATE AND IPRATROPIUM BROMIDE [Concomitant]
     Dosage: 0.5 MG, UNK
  3. VITAMIN C                          /00008001/ [Concomitant]
     Dosage: 1000 MG, UNK
  4. DOCUSATE SODIUM [Concomitant]
     Dosage: UNK
  5. NORCO [Concomitant]
     Dosage: NORCO 10/325, AS NECESSARY
  6. LANTUS [Concomitant]
     Dosage: 40 UNITS IN THE EVENING, UNK
  7. BENZONATATE [Concomitant]
     Dosage: 100 MG, TID
  8. PROMETHAZINE WITH CODEINE [Concomitant]
     Dosage: 5 UNK, UNK (1 TEASPOON AT BEDTIME)
  9. NIASPAN [Concomitant]
     Dosage: 1000 MG IN THE EVENING, UNK
  10. MIRAPEX [Concomitant]
     Dosage: 0.25 MG AT BEDTIME, UNK
  11. RAPAFLO [Concomitant]
     Dosage: 8 MG, DAILY
  12. CRESTOR [Concomitant]
     Dosage: 5 MG DAILY
  13. ADVAIR [Concomitant]
     Dosage: TWO PUFFS DAILY
  14. JANUMET                            /06535301/ [Concomitant]
     Dosage: 1 UNK, (50/1000MG IN THE MORNING AND NIGHT)
  15. TAXOL [Concomitant]
     Indication: NON-SMALL CELL LUNG CANCER STAGE IV
     Dosage: UNK
  16. CARBOPLATIN [Concomitant]
     Indication: NON-SMALL CELL LUNG CANCER STAGE IV
     Dosage: UNK

REACTIONS (7)
  - Tachycardia [Unknown]
  - Dyspnoea [Unknown]
  - Respiratory distress [Unknown]
  - Blood pressure decreased [Unknown]
  - Blood glucose increased [Unknown]
  - Cough [Unknown]
  - Dyspnoea paroxysmal nocturnal [Unknown]
